FAERS Safety Report 23219192 (Version 1)
Quarter: 2023Q4

REPORT INFORMATION
  Report Type: Spontaneous
  Country: GB (occurrence: GB)
  Receive Date: 20231122
  Receipt Date: 20231122
  Transmission Date: 20240109
  Serious: Yes (Disabling, Other)
  Sender: FDA-Public Use
  Company Number: None

PATIENT

DRUGS (3)
  1. PREDNISOLONE [Suspect]
     Active Substance: PREDNISOLONE
     Indication: Adverse drug reaction
     Dosage: 5 MG, QD (TABLET)
     Dates: start: 20230825, end: 20230831
  2. CALCITRIOL [Suspect]
     Active Substance: CALCITRIOL
     Indication: Psoriasis
     Dosage: UNK, BID (CREAM TO BE APPLIED TWICE PER DAY)
     Dates: start: 20230907, end: 20230912
  3. ELIDEL [Suspect]
     Active Substance: PIMECROLIMUS
     Indication: Rash
     Dosage: UNK
     Dates: start: 20230720, end: 20230824

REACTIONS (2)
  - Topical steroid withdrawal reaction [Not Recovered/Not Resolved]
  - Medication error [Unknown]

NARRATIVE: CASE EVENT DATE: 20230824
